FAERS Safety Report 4407312-6 (Version None)
Quarter: 2004Q3

REPORT INFORMATION
  Report Type: 
  Country: None (occurrence: None)
  Receive Date: 20040723
  Receipt Date: 20040723
  Transmission Date: 20050211
  Serious: Yes (Life-Threatening, Hospitalization)
  Sender: FDA-Public Use
  Company Number: None

PATIENT
  Sex: Female
  Weight: 128.8216 kg

DRUGS (1)
  1. ZYVOX [Suspect]
     Indication: SEPSIS
     Dosage: 600 MG IV Q 12H
     Route: 042
     Dates: start: 20040522, end: 20040718

REACTIONS (4)
  - APLASTIC ANAEMIA [None]
  - CARDIO-RESPIRATORY ARREST [None]
  - DERMATITIS EXFOLIATIVE [None]
  - THROMBOCYTOPENIA [None]
